FAERS Safety Report 6414117-3 (Version None)
Quarter: 2009Q4

REPORT INFORMATION
  Report Type: 
  Country: None (occurrence: None)
  Receive Date: 20091026
  Receipt Date: 20091015
  Transmission Date: 20100525
  Serious: Yes (Hospitalization)
  Sender: FDA-Public Use
  Company Number: US-MERCK-0910USA02464

PATIENT
  Age: 51 Year
  Sex: Female

DRUGS (1)
  1. DECADRON [Suspect]
     Route: 048

REACTIONS (8)
  - BRONCHOPULMONARY ASPERGILLOSIS [None]
  - CYTOMEGALOVIRUS TEST [None]
  - ENTEROCOCCAL INFECTION [None]
  - GASTROENTERITIS ESCHERICHIA COLI [None]
  - HERPES SIMPLEX [None]
  - PNEUMONIA KLEBSIELLA [None]
  - STRONGYLOIDIASIS [None]
  - VASCULITIS [None]
